FAERS Safety Report 13695800 (Version 2)
Quarter: 2017Q3

REPORT INFORMATION
  Report Type: Report from Study
  Country: None (occurrence: CA)
  Receive Date: 20170627
  Receipt Date: 20170719
  Transmission Date: 20171127
  Serious: Yes (Hospitalization)
  Sender: FDA-Public Use
  Company Number: CA-ABBVIE-17P-028-1977060-00

PATIENT
  Age: 28 Year
  Sex: Male
  Weight: 64 kg

DRUGS (2)
  1. HUMIRA [Suspect]
     Active Substance: ADALIMUMAB
     Route: 058
     Dates: start: 20170615
  2. HUMIRA [Suspect]
     Active Substance: ADALIMUMAB
     Indication: CROHN^S DISEASE
     Route: 058
     Dates: start: 20170223, end: 20170518

REACTIONS (2)
  - Gastrointestinal fistula [Not Recovered/Not Resolved]
  - Abdominal wall abscess [Recovering/Resolving]

NARRATIVE: CASE EVENT DATE: 20170531
